FAERS Safety Report 13883761 (Version 1)
Quarter: 2017Q3

REPORT INFORMATION
  Report Type: Spontaneous
  Country: US (occurrence: US)
  Receive Date: 20170819
  Receipt Date: 20170819
  Transmission Date: 20171127
  Serious: No
  Sender: FDA-Public Use
  Company Number: US-009507513-1708USA005552

PATIENT
  Age: 44 Year
  Sex: Male

DRUGS (4)
  1. LATUDA [Concomitant]
     Active Substance: LURASIDONE HYDROCHLORIDE
  2. METHADONE HCL [Concomitant]
     Active Substance: METHADONE HYDROCHLORIDE
  3. PENICILLIN V POTASSIUM. [Concomitant]
     Active Substance: PENICILLIN V POTASSIUM
  4. ZEPATIER [Suspect]
     Active Substance: ELBASVIR\GRAZOPREVIR
     Indication: CHRONIC HEPATITIS C
     Dosage: 1 DF, QD
     Route: 048
     Dates: start: 20170721

REACTIONS (1)
  - Endodontic procedure [Unknown]

NARRATIVE: CASE EVENT DATE: 2017
